FAERS Safety Report 21266202 (Version 1)
Quarter: 2022Q3

REPORT INFORMATION
  Report Type: Spontaneous
  Country: US (occurrence: None)
  Receive Date: 20220826
  Receipt Date: 20220826
  Transmission Date: 20221027
  Serious: Yes (Hospitalization, Other)
  Sender: FDA-Public Use
  Company Number: None

PATIENT
  Sex: Male
  Weight: 88.9 kg

DRUGS (5)
  1. DIVALPROEX SODIUM [Suspect]
     Active Substance: DIVALPROEX SODIUM
     Indication: Bipolar disorder
     Dosage: FREQUENCY : TWICE A DAY;?
     Route: 048
     Dates: start: 20220805, end: 20220821
  2. PALIPERIDONE PALMITATE [Concomitant]
  3. RISPERIDONE [Concomitant]
     Active Substance: RISPERIDONE
  4. TRAZODONE [Concomitant]
  5. BENZTROPINE [Concomitant]

REACTIONS (6)
  - Fatigue [None]
  - Fatigue [None]
  - Drooling [None]
  - Nausea [None]
  - Vomiting [None]
  - Hyperammonaemia [None]

NARRATIVE: CASE EVENT DATE: 20220821
